FAERS Safety Report 7267186-5 (Version None)
Quarter: 2011Q1

REPORT INFORMATION
  Report Type: 
  Country: None (occurrence: None)
  Receive Date: 20110201
  Receipt Date: 20110126
  Transmission Date: 20110831
  Serious: Yes (Death, Hospitalization)
  Sender: FDA-Public Use
  Company Number: US-BAXTER-2010BH029855

PATIENT
  Age: 80 Year
  Sex: Male

DRUGS (1)
  1. GAMMAGARD LIQUID [Suspect]
     Indication: PRODUCT USED FOR UNKNOWN INDICATION
     Route: 042
     Dates: start: 20090812, end: 20090812

REACTIONS (8)
  - DEATH [None]
  - ASTHENIA [None]
  - JOINT SPRAIN [None]
  - GENERAL PHYSICAL HEALTH DETERIORATION [None]
  - CELLULITIS [None]
  - DECREASED APPETITE [None]
  - FAILURE TO THRIVE [None]
  - HERPES VIRUS INFECTION [None]
